FAERS Safety Report 10200943 (Version 1)
Quarter: 2014Q2

REPORT INFORMATION
  Report Type: Spontaneous
  Country: US (occurrence: US)
  Receive Date: 20140528
  Receipt Date: 20140528
  Transmission Date: 20141212
  Serious: Yes (Hospitalization)
  Sender: FDA-Public Use
  Company Number: US-BAYER-2014-077211

PATIENT
  Age: 46 Year
  Sex: Female

DRUGS (8)
  1. YAZ [Suspect]
  2. YASMIN [Suspect]
  3. OCELLA [Suspect]
  4. IBUPROFEN [IBUPROFEN] [Concomitant]
     Dosage: UNK
     Dates: start: 20090703
  5. MECLIZINE [Concomitant]
     Dosage: UNK
     Dates: start: 20090703
  6. PEPCID [FAMOTIDINE] [Concomitant]
  7. TYLENOL [PARACETAMOL] [Concomitant]
  8. TEMAZEPAM [Concomitant]
     Indication: SLEEP DISORDER

REACTIONS (11)
  - Cerebrovascular accident [None]
  - Paradoxical embolism [None]
  - Hemiparesis [None]
  - Visual impairment [None]
  - Depression [None]
  - Anxiety [None]
  - Adjustment disorder [None]
  - Coordination abnormal [None]
  - Loss of proprioception [None]
  - Ataxia [None]
  - Visual acuity reduced [None]
